FAERS Safety Report 13641656 (Version 1)
Quarter: 2017Q2

REPORT INFORMATION
  Report Type: Spontaneous
  Country: US (occurrence: US)
  Receive Date: 20170611
  Receipt Date: 20170611
  Transmission Date: 20170830
  Serious: Yes (Other)
  Sender: FDA-Public Use
  Company Number: None

PATIENT
  Age: 37 Year
  Sex: Female
  Weight: 67.95 kg

DRUGS (7)
  1. CALCIUM ALL GUMMIES [Concomitant]
  2. BO-FLEX [Concomitant]
  3. DETROL [Concomitant]
     Active Substance: TOLTERODINE TARTRATE
  4. ZATAC [Concomitant]
  5. VITAMINS MATILVITAMIN [Concomitant]
  6. SPIRONOLACTONE. [Suspect]
     Active Substance: SPIRONOLACTONE
     Indication: ACNE
     Dosage: ?          QUANTITY:30 TABLET(S);?
     Route: 048
  7. FOLIC ACID. [Concomitant]
     Active Substance: FOLIC ACID

REACTIONS (1)
  - Muscle spasms [None]

NARRATIVE: CASE EVENT DATE: 20170606
